FAERS Safety Report 9315321 (Version 1)
Quarter: 2013Q2

REPORT INFORMATION
  Report Type: Spontaneous
  Country: CN (occurrence: CN)
  Receive Date: 20130529
  Receipt Date: 20130529
  Transmission Date: 20140414
  Serious: Yes (Other)
  Sender: FDA-Public Use
  Company Number: CN-ASTRAZENECA-2013SE37449

PATIENT
  Age: 12694 Day
  Sex: Male
  Weight: 68 kg

DRUGS (1)
  1. BUDESONIDE FORMOTEROL [Suspect]
     Indication: ASTHMA
     Dosage: 5 UG TWO TIMES A DAY
     Route: 055
     Dates: start: 20120305

REACTIONS (2)
  - Oesophageal candidiasis [Recovering/Resolving]
  - Fungal infection [Recovering/Resolving]
